FAERS Safety Report 17638487 (Version 2)
Quarter: 2021Q1

REPORT INFORMATION
  Report Type: Spontaneous
  Country: US (occurrence: US)
  Receive Date: 20200407
  Receipt Date: 20210121
  Transmission Date: 20210419
  Serious: Yes (Hospitalization)
  Sender: FDA-Public Use
  Company Number: US-TEVA-2020-US-1218196

PATIENT
  Age: 78 Year
  Sex: Female

DRUGS (1)
  1. ENOXAPARIN [Suspect]
     Active Substance: ENOXAPARIN
     Indication: ANTICOAGULANT THERAPY
     Route: 058

REACTIONS (4)
  - Anaemia [Unknown]
  - Pelvic haematoma [Recovering/Resolving]
  - Hydronephrosis [Recovering/Resolving]
  - Acute kidney injury [Recovering/Resolving]
